FAERS Safety Report 22925884 (Version 2)
Quarter: 2024Q3

REPORT INFORMATION
  Report Type: Spontaneous
  Country: US (occurrence: US)
  Receive Date: 20230908
  Receipt Date: 20240907
  Transmission Date: 20241017
  Serious: No
  Sender: AIMMUNE
  Company Number: US-ZENPEP LLC-2023AIMT00203

PATIENT

DRUGS (2)
  1. ZENPEP [Suspect]
     Active Substance: PANCRELIPASE AMYLASE\PANCRELIPASE LIPASE\PANCRELIPASE PROTEASE
     Indication: Pancreatic failure
     Dosage: 40000 USP UNITS
     Route: 048
  2. ZENPEP [Suspect]
     Active Substance: PANCRELIPASE AMYLASE\PANCRELIPASE LIPASE\PANCRELIPASE PROTEASE
     Dosage: 40000 USP UNITS, LAST DOSE PRIOR TO EVENT
     Route: 048

REACTIONS (2)
  - Condition aggravated [Unknown]
  - Abdominal pain [Unknown]
